FAERS Safety Report 8058783-8 (Version None)
Quarter: 2012Q1

REPORT INFORMATION
  Report Type: 
  Country: None (occurrence: None)
  Receive Date: 20120120
  Receipt Date: 20120110
  Transmission Date: 20120608
  Serious: Yes (Hospitalization, Other)
  Sender: FDA-Public Use
  Company Number: US-UCBSA-049587

PATIENT
  Age: 33 Year
  Sex: Female
  Weight: 53.5 kg

DRUGS (3)
  1. SULFATE [Suspect]
  2. CIMZIA [Suspect]
     Indication: RHEUMATOID ARTHRITIS
     Route: 058
     Dates: start: 20110401, end: 20111201
  3. ARAVA [Concomitant]
     Indication: RHEUMATOID ARTHRITIS
     Dosage: TAKEN FROM APPROXIMATELY 14 YEARS
     Route: 048
     Dates: end: 20111201

REACTIONS (5)
  - PSORIASIS [None]
  - ERYTHEMA MULTIFORME [None]
  - URTICARIA [None]
  - DRUG HYPERSENSITIVITY [None]
  - COXSACKIE VIRAL INFECTION [None]
